FAERS Safety Report 24853621 (Version 1)
Quarter: 2025Q1

REPORT INFORMATION
  Report Type: Spontaneous
  Country: FR (occurrence: FR)
  Receive Date: 20250117
  Receipt Date: 20250117
  Transmission Date: 20250409
  Serious: Yes (Other)
  Sender: BRISTOL-MYERS SQUIBB COMPANY
  Company Number: None

PATIENT
  Age: 62 Year
  Sex: Female

DRUGS (3)
  1. INREBIC [Suspect]
     Active Substance: FEDRATINIB HYDROCHLORIDE
     Indication: Myelofibrosis
     Route: 048
     Dates: start: 20220713, end: 20220907
  2. INREBIC [Suspect]
     Active Substance: FEDRATINIB HYDROCHLORIDE
     Dosage: 100 MG THEN 200 MG/DAY FROM 26/10
     Route: 048
     Dates: start: 20221012
  3. INREBIC [Suspect]
     Active Substance: FEDRATINIB HYDROCHLORIDE
     Route: 048

REACTIONS (1)
  - Uveitis [Recovered/Resolved]

NARRATIVE: CASE EVENT DATE: 20240220
